FAERS Safety Report 11249086 (Version 1)
Quarter: 2015Q3

REPORT INFORMATION
  Report Type: Spontaneous
  Country: US (occurrence: US)
  Receive Date: 20150708
  Receipt Date: 20150708
  Transmission Date: 20151125
  Serious: No
  Sender: FDA-Public Use
  Company Number: US-ELI_LILLY_AND_COMPANY-US200810005917

PATIENT
  Age: 65 Year
  Sex: Male

DRUGS (3)
  1. FOLIC ACID. [Concomitant]
     Active Substance: FOLIC ACID
  2. VITAMIN B12 [Concomitant]
     Active Substance: CYANOCOBALAMIN
  3. ALIMTA [Suspect]
     Active Substance: PEMETREXED DISODIUM
     Indication: SMALL CELL LUNG CANCER
     Dates: start: 200807

REACTIONS (5)
  - Rash [Recovered/Resolved]
  - Hypoaesthesia [Recovered/Resolved]
  - White blood cell disorder [Recovered/Resolved]
  - Eye swelling [Not Recovered/Not Resolved]
  - Crying [Not Recovered/Not Resolved]

NARRATIVE: CASE EVENT DATE: 200807
